FAERS Safety Report 19745149 (Version 1)
Quarter: 2021Q3

REPORT INFORMATION
  Report Type: Report from Study
  Country: DE (occurrence: DE)
  Receive Date: 20210825
  Receipt Date: 20210825
  Transmission Date: 20211014
  Serious: Yes (Other)
  Sender: FDA-Public Use
  Company Number: DE-TAKEDA-DE202010470

PATIENT
  Age: 62 Year
  Sex: Female

DRUGS (16)
  1. TEDUGLUTIDE [Suspect]
     Active Substance: TEDUGLUTIDE
     Indication: SHORT-BOWEL SYNDROME
     Dosage: 2.8 MILLIGRAM (0.05 MG/KG), QD
     Route: 065
     Dates: start: 20150714, end: 20170918
  2. TEDUGLUTIDE [Suspect]
     Active Substance: TEDUGLUTIDE
     Indication: SHORT-BOWEL SYNDROME
     Dosage: 2.8 MILLIGRAM (0.05 MG/KG), QD
     Route: 065
     Dates: start: 20150714, end: 20170918
  3. TEDUGLUTIDE [Suspect]
     Active Substance: TEDUGLUTIDE
     Indication: SHORT-BOWEL SYNDROME
     Dosage: 2.8 MILLIGRAM (0.05 MG/KG), QD
     Route: 065
     Dates: start: 20150714, end: 20170918
  4. TEDUGLUTIDE [Suspect]
     Active Substance: TEDUGLUTIDE
     Dosage: 2.6 MILLIGRAM (0.05 MG/KG), QD
     Route: 065
     Dates: start: 20171109, end: 201802
  5. NORTASE [Concomitant]
     Active Substance: PANCRELIPASE
     Indication: FLATULENCE
     Dosage: 1 DOSAGE FORM
     Route: 048
     Dates: start: 20180215
  6. TEDUGLUTIDE [Suspect]
     Active Substance: TEDUGLUTIDE
     Indication: SHORT-BOWEL SYNDROME
     Dosage: 2.8 MILLIGRAM (0.05 MG/KG), QD
     Route: 065
     Dates: start: 20150714, end: 20170918
  7. TEDUGLUTIDE [Suspect]
     Active Substance: TEDUGLUTIDE
     Dosage: 2.6 MILLIGRAM (0.05 MG/KG), QD
     Route: 065
     Dates: start: 20171109, end: 201802
  8. TEDUGLUTIDE [Suspect]
     Active Substance: TEDUGLUTIDE
     Dosage: 2.8 MILLIGRAM (0.05 MG/KG), QD
     Route: 065
     Dates: start: 201802
  9. TEDUGLUTIDE [Suspect]
     Active Substance: TEDUGLUTIDE
     Dosage: 2.6 MILLIGRAM (0.05 MG/KG), QD
     Route: 065
     Dates: start: 20171109, end: 201802
  10. TEDUGLUTIDE [Suspect]
     Active Substance: TEDUGLUTIDE
     Dosage: 2.6 MILLIGRAM (0.05 MG/KG), QD
     Route: 065
     Dates: start: 20171109, end: 201802
  11. TEDUGLUTIDE [Suspect]
     Active Substance: TEDUGLUTIDE
     Dosage: 2.8 MILLIGRAM (0.05 MG/KG), QD
     Route: 065
     Dates: start: 201802
  12. REKAWAN [Concomitant]
     Active Substance: POTASSIUM CHLORIDE
     Indication: HYPOKALAEMIA
     Dosage: 1000 MILLIGRAM, BID
     Route: 048
     Dates: start: 201709
  13. LEVOFLOXACIN. [Concomitant]
     Active Substance: LEVOFLOXACIN
     Indication: URINARY TRACT INFECTION
     Dosage: 500 MILLIGRAM, QD
     Route: 048
     Dates: start: 201705, end: 201705
  14. TEDUGLUTIDE [Suspect]
     Active Substance: TEDUGLUTIDE
     Dosage: 2.8 MILLIGRAM (0.05 MG/KG), QD
     Route: 065
     Dates: start: 201802
  15. TEDUGLUTIDE [Suspect]
     Active Substance: TEDUGLUTIDE
     Dosage: 2.8 MILLIGRAM (0.05 MG/KG), QD
     Route: 065
     Dates: start: 201802
  16. XIFAXAN [Concomitant]
     Active Substance: RIFAXIMIN
     Indication: GASTROINTESTINAL BACTERIAL OVERGROWTH
     Dosage: 550 MILLIGRAM, EVERY 3?4 WEEKS
     Route: 048
     Dates: start: 20171109, end: 201901

REACTIONS (3)
  - Flatulence [Not Recovered/Not Resolved]
  - Haematochezia [Not Recovered/Not Resolved]
  - Mucous stools [Not Recovered/Not Resolved]

NARRATIVE: CASE EVENT DATE: 20200101
